FAERS Safety Report 4649371-1 (Version None)
Quarter: 2005Q2

REPORT INFORMATION
  Report Type: 
  Country: None (occurrence: None)
  Receive Date: 20050428
  Receipt Date: 20050428
  Transmission Date: 20051028
  Serious: No
  Sender: FDA-Public Use
  Company Number: None

PATIENT
  Age: 51 Year
  Sex: Male
  Weight: 68 kg

DRUGS (9)
  1. DOCETAXEL [Suspect]
     Indication: NEOPLASM MALIGNANT
     Dosage: 181 MG IN 250 ML  IV
     Route: 042
     Dates: start: 20041220
  2. FENTANYL [Concomitant]
  3. MORPHINE SULFATE [Concomitant]
  4. PREDNISONE [Concomitant]
  5. PROZAC [Concomitant]
  6. DSS [Concomitant]
  7. GUAIFENESIN [Concomitant]
  8. ATARAX [Concomitant]
  9. MEGESTROL [Concomitant]

REACTIONS (3)
  - ERYTHEMA MULTIFORME [None]
  - PAIN OF SKIN [None]
  - SKIN LESION [None]
